FAERS Safety Report 6067062-X (Version None)
Quarter: 2009Q1

REPORT INFORMATION
  Report Type: 
  Country: None (occurrence: None)
  Receive Date: 20090205
  Receipt Date: 20090129
  Transmission Date: 20090719
  Serious: Yes (Other)
  Sender: FDA-Public Use
  Company Number: CA-MERCK-0901CAN00032

PATIENT
  Sex: Female

DRUGS (3)
  1. FOSAMAX [Suspect]
     Route: 048
     Dates: start: 20081201
  2. LEVOTHYROXINE SODIUM [Concomitant]
     Route: 065
  3. PREGABALIN [Concomitant]
     Route: 065

REACTIONS (1)
  - METASTASES TO MENINGES [None]
